FAERS Safety Report 6652404-4 (Version None)
Quarter: 2010Q1

REPORT INFORMATION
  Report Type: 
  Country: None (occurrence: None)
  Receive Date: 20100323
  Receipt Date: 20100310
  Transmission Date: 20100710
  Serious: Yes (Other)
  Sender: FDA-Public Use
  Company Number: 1-21660879

PATIENT
  Age: 44 Year
  Sex: Female
  Weight: 54.4316 kg

DRUGS (4)
  1. FENTANYL-50 [Suspect]
     Indication: PAIN
     Dosage: 100 MG/HR, Q 3 DAYS, TRANSDERMAL
     Route: 062
     Dates: start: 20100201
  2. PERCOCET [Concomitant]
  3. VALIUM [Concomitant]
  4. MIRALAX [Concomitant]

REACTIONS (17)
  - APPLICATION SITE BLEEDING [None]
  - APPLICATION SITE ERYTHEMA [None]
  - APPLICATION SITE SCAR [None]
  - BLOOD PRESSURE DECREASED [None]
  - BODY TEMPERATURE FLUCTUATION [None]
  - CARDIAC FLUTTER [None]
  - CEREBROVASCULAR ACCIDENT [None]
  - CHEST PAIN [None]
  - DIZZINESS [None]
  - DRUG INEFFECTIVE [None]
  - DYSPNOEA [None]
  - HEART RATE ABNORMAL [None]
  - IMPAIRED HEALING [None]
  - MALAISE [None]
  - METABOLIC DISORDER [None]
  - PRODUCT ADHESION ISSUE [None]
  - TRANSIENT ISCHAEMIC ATTACK [None]
